FAERS Safety Report 7374592-7 (Version None)
Quarter: 2011Q1

REPORT INFORMATION
  Report Type: 
  Country: None (occurrence: None)
  Receive Date: 20110325
  Receipt Date: 20100414
  Transmission Date: 20110831
  Serious: No
  Sender: FDA-Public Use
  Company Number: US-MYLANLABS-2010S1006556

PATIENT
  Age: 40 Year
  Sex: Female
  Weight: 58.97 kg

DRUGS (2)
  1. VICODIN [Suspect]
     Indication: MUSCULOSKELETAL PAIN
     Route: 048
  2. FENTANYL-100 [Suspect]
     Indication: MUSCULOSKELETAL PAIN
     Dosage: CHANGED Q72H
     Route: 062
     Dates: start: 20100411

REACTIONS (4)
  - DRUG INEFFECTIVE [None]
  - EXPIRED DRUG ADMINISTERED [None]
  - PAIN [None]
  - INTENTIONAL DRUG MISUSE [None]
